FAERS Safety Report 20749354 (Version 2)
Quarter: 2022Q2

REPORT INFORMATION
  Report Type: Spontaneous
  Country: DE (occurrence: DE)
  Receive Date: 20220426
  Receipt Date: 20220606
  Transmission Date: 20220720
  Serious: Yes (Death)
  Sender: FDA-Public Use
  Company Number: None

PATIENT
  Age: 62 Year
  Sex: Female
  Weight: 65 kg

DRUGS (8)
  1. PEMETREXED [Suspect]
     Active Substance: PEMETREXED
     Indication: Bronchial carcinoma
     Dosage: UNK
     Route: 042
  2. CARBOPLATIN [Suspect]
     Active Substance: CARBOPLATIN
     Indication: Bronchial carcinoma
     Dosage: UNK
     Route: 042
  3. IPILIMUMAB [Suspect]
     Active Substance: IPILIMUMAB
     Indication: Bronchial carcinoma
     Dosage: UNK
     Route: 042
  4. AMLODIPINE [Concomitant]
     Active Substance: AMLODIPINE BESYLATE
     Dosage: UNK
  5. NIVOLUMAB [Concomitant]
     Active Substance: NIVOLUMAB
     Dosage: UNK
  6. FLUTICASONE [Concomitant]
     Active Substance: FLUTICASONE
     Dosage: UNK
  7. OLMESARTAN [Concomitant]
     Active Substance: OLMESARTAN
     Dosage: UNK
  8. FENOTEROL HYDROBROMIDE\IPRATROPIUM BROMIDE [Concomitant]
     Active Substance: FENOTEROL HYDROBROMIDE\IPRATROPIUM BROMIDE
     Dosage: UNK

REACTIONS (2)
  - Respiratory failure [Fatal]
  - Pneumonia [Fatal]

NARRATIVE: CASE EVENT DATE: 20220213
